FAERS Safety Report 24104256 (Version 1)
Quarter: 2024Q3

REPORT INFORMATION
  Report Type: Other
  Country: US (occurrence: US)
  Receive Date: 20240717
  Receipt Date: 20240717
  Transmission Date: 20241017
  Serious: Yes (Hospitalization)
  Sender: APPCO PHARMA
  Company Number: US-Appco Pharma LLC-2159212

PATIENT
  Age: 4 Year
  Sex: Female

DRUGS (8)
  1. CLINDAMYCIN PALMITATE HYDROCHLORIDE [Suspect]
     Active Substance: CLINDAMYCIN PALMITATE HYDROCHLORIDE
     Indication: Chalazion
     Route: 048
  2. DEXAMETHASONE [Suspect]
     Active Substance: DEXAMETHASONE
     Route: 061
  3. PREDNISONE [Suspect]
     Active Substance: PREDNISONE
     Route: 065
  4. AZITHROMYCIN [Suspect]
     Active Substance: AZITHROMYCIN
     Route: 048
  5. AMOXICILLIN AND CLAVULANATE POTASSIUM [Suspect]
     Active Substance: AMOXICILLIN\CLAVULANATE POTASSIUM
     Route: 048
  6. POLYMYXIN B [Suspect]
     Active Substance: POLYMYXIN B
     Route: 061
  7. NEOMYCIN [Suspect]
     Active Substance: NEOMYCIN
     Route: 065
  8. ERYTHROMYCIN [Suspect]
     Active Substance: ERYTHROMYCIN
     Route: 061

REACTIONS (1)
  - Treatment failure [Unknown]
